APPROVED DRUG PRODUCT: DEXAMETHASONE
Active Ingredient: DEXAMETHASONE
Strength: 0.5MG/5ML
Dosage Form/Route: SOLUTION;ORAL
Application: A088248 | Product #001
Applicant: HIKMA PHARMACEUTICALS USA INC
Approved: Sep 1, 1983 | RLD: Yes | RS: Yes | Type: RX